FAERS Safety Report 20152725 (Version 1)
Quarter: 2021Q4

REPORT INFORMATION
  Report Type: Spontaneous
  Country: US (occurrence: None)
  Receive Date: 20211206
  Receipt Date: 20211206
  Transmission Date: 20220303
  Serious: No
  Sender: FDA-Public Use
  Company Number: None

PATIENT
  Age: 29 Year
  Sex: Female
  Weight: 76.5 kg

DRUGS (3)
  1. ONDANSETRON [Suspect]
     Active Substance: ONDANSETRON
     Indication: Nausea
     Dosage: FREQUENCY : AS NEEDED;?
     Route: 060
     Dates: start: 20200101, end: 20211201
  2. GABAPENTIN [Concomitant]
     Active Substance: GABAPENTIN
  3. LEXAPRO [Concomitant]
     Active Substance: ESCITALOPRAM OXALATE

REACTIONS (7)
  - Lip pruritus [None]
  - Pruritus [None]
  - Lip swelling [None]
  - Throat irritation [None]
  - Swollen tongue [None]
  - Urticaria [None]
  - Drug hypersensitivity [None]

NARRATIVE: CASE EVENT DATE: 20211201
